FAERS Safety Report 5358358-5 (Version None)
Quarter: 2007Q2

REPORT INFORMATION
  Report Type: 
  Country: None (occurrence: None)
  Receive Date: 20070530
  Receipt Date: 20061004
  Transmission Date: 20071010
  Serious: Yes (Other)
  Sender: FDA-Public Use
  Company Number: US200601002023

PATIENT
  Age: 33 Year
  Sex: Male
  Weight: 181.4 kg

DRUGS (12)
  1. ZYPREXA [Suspect]
     Indication: BIPOLAR DISORDER
     Dates: start: 20020101
  2. ZYPREXA [Suspect]
     Indication: BIPOLAR DISORDER
     Dates: start: 20030509
  3. ZYPREXA ZYDIS [Suspect]
     Dosage: 10 MG, AS NEEDED
     Dates: start: 20030208
  4. ABILIFY [Concomitant]
  5. RISPERDAL [Concomitant]
  6. EFFEXOR [Concomitant]
  7. BEXTRA [Concomitant]
  8. PROVENTIL INHALER [Concomitant]
  9. CLONIDINE [Concomitant]
  10. ZITHROMAX [Concomitant]
  11. MARIJUANA [Concomitant]
  12. ALCOHOL [Concomitant]

REACTIONS (11)
  - ANGER [None]
  - BACK PAIN [None]
  - DIABETES MELLITUS NON-INSULIN-DEPENDENT [None]
  - HALLUCINATION, AUDITORY [None]
  - HALLUCINATION, VISUAL [None]
  - INSOMNIA [None]
  - IRRITABILITY [None]
  - PRESCRIBED OVERDOSE [None]
  - SELF-INJURIOUS IDEATION [None]
  - TREATMENT NONCOMPLIANCE [None]
  - WEIGHT INCREASED [None]
